FAERS Safety Report 16698103 (Version 1)
Quarter: 2019Q3

REPORT INFORMATION
  Report Type: Spontaneous
  Country: US (occurrence: US)
  Receive Date: 20190813
  Receipt Date: 20190813
  Transmission Date: 20191004
  Serious: No
  Sender: FDA-Public Use
  Company Number: US-BRACCO-2018US04333

PATIENT

DRUGS (1)
  1. KINEVAC [Suspect]
     Active Substance: SINCALIDE
     Indication: DIAGNOSTIC PROCEDURE
     Dosage: 0.02 MICROGRAMS/KG
     Dates: start: 20180808, end: 20180808

REACTIONS (1)
  - Therapeutic product effect decreased [Unknown]

NARRATIVE: CASE EVENT DATE: 20180808
